FAERS Safety Report 24298791 (Version 1)
Quarter: 2024Q3

REPORT INFORMATION
  Report Type: Spontaneous
  Country: US (occurrence: None)
  Receive Date: 20240909
  Receipt Date: 20240909
  Transmission Date: 20241017
  Serious: Yes (Hospitalization)
  Sender: Public
  Company Number: None

PATIENT
  Age: 51 Year
  Sex: Male
  Weight: 61.2 kg

DRUGS (3)
  1. FLUOROURACIL [Suspect]
     Active Substance: FLUOROURACIL
  2. LEUCOVORIN CALCIUM [Concomitant]
     Active Substance: LEUCOVORIN CALCIUM
  3. ELOXATIN [Concomitant]
     Active Substance: OXALIPLATIN

REACTIONS (10)
  - Suprapubic pain [None]
  - Pyrexia [None]
  - Nausea [None]
  - Vomiting [None]
  - Dysuria [None]
  - Proctalgia [None]
  - Tachycardia [None]
  - Sepsis [None]
  - Gastrointestinal disorder [None]
  - Rectal perforation [None]

NARRATIVE: CASE EVENT DATE: 20240812
